FAERS Safety Report 16929531 (Version 1)
Quarter: 2019Q4

REPORT INFORMATION
  Report Type: Report from Study
  Country: US (occurrence: US)
  Receive Date: 20191017
  Receipt Date: 20191017
  Transmission Date: 20200122
  Serious: No
  Sender: FDA-Public Use
  Company Number: US-BEH-2019105921

PATIENT
  Age: 23 Year
  Sex: Male

DRUGS (2)
  1. HIZENTRA [Suspect]
     Active Substance: HUMAN IMMUNOGLOBULIN G
     Indication: IMMUNODEFICIENCY COMMON VARIABLE
  2. HIZENTRA [Suspect]
     Active Substance: HUMAN IMMUNOGLOBULIN G
     Indication: PRIMARY IMMUNODEFICIENCY SYNDROME
     Dosage: 90 MILLILITER, EVERY 10 DAYS
     Route: 058
     Dates: start: 2009

REACTIONS (4)
  - Malaise [Recovering/Resolving]
  - Therapy cessation [Recovering/Resolving]
  - Nasopharyngitis [Unknown]
  - Treatment noncompliance [Unknown]
